FAERS Safety Report 15490190 (Version 15)
Quarter: 2021Q4

REPORT INFORMATION
  Report Type: Spontaneous
  Country: US (occurrence: US)
  Receive Date: 20181011
  Receipt Date: 20211117
  Transmission Date: 20220303
  Serious: Yes (Other)
  Sender: FDA-Public Use
  Company Number: US-PFIZER INC-2018277896

PATIENT
  Age: 60 Year
  Sex: Female
  Weight: 50 kg

DRUGS (17)
  1. PREMARIN [Suspect]
     Active Substance: ESTROGENS, CONJUGATED
     Indication: Menopause
     Dosage: 0.625 MG, ONCE A DAY
     Route: 048
     Dates: start: 2002
  2. PREMARIN [Suspect]
     Active Substance: ESTROGENS, CONJUGATED
     Dosage: 0.625 MG, ONCE A DAY
     Route: 048
     Dates: start: 2018
  3. PREMARIN [Suspect]
     Active Substance: ESTROGENS, CONJUGATED
     Dosage: 0.625 MG, 1X/DAY, [EVERY MORNING]
     Route: 048
  4. LEVOXYL [Concomitant]
     Active Substance: LEVOTHYROXINE SODIUM
     Indication: Depression
     Dosage: UNK
  5. LEVOXYL [Concomitant]
     Active Substance: LEVOTHYROXINE SODIUM
     Indication: Thyroid disorder
  6. LEVOXYL [Concomitant]
     Active Substance: LEVOTHYROXINE SODIUM
     Indication: Gastrointestinal disorder
  7. REGLAN [Concomitant]
     Active Substance: METOCLOPRAMIDE HYDROCHLORIDE
     Indication: Abdominal pain upper
     Dosage: 10 MG, 3X/DAY
  8. KLONOPIN [Concomitant]
     Active Substance: CLONAZEPAM
     Indication: Sleep terror
     Dosage: 2 MG, 1X/DAY (AT BEDTIME)
     Dates: start: 1992
  9. KLONOPIN [Concomitant]
     Active Substance: CLONAZEPAM
     Indication: Post-traumatic stress disorder
  10. SUPER COLLAGEN [Concomitant]
     Indication: Skin disorder
     Dosage: 3 DF, DAILY
  11. SUPER COLLAGEN [Concomitant]
     Indication: Arthropathy
  12. SUPER COLLAGEN [Concomitant]
     Indication: Hair disorder
  13. SUPER COLLAGEN [Concomitant]
     Indication: Nail disorder
  14. VITAMIN D3 [Concomitant]
     Active Substance: CHOLECALCIFEROL
     Dosage: UNK
     Dates: start: 2015
  15. L-LYSINE [LYSINE] [Concomitant]
     Dosage: UNK
     Dates: start: 2015
  16. VITAMIN E [Concomitant]
     Active Substance: .ALPHA.-TOCOPHEROL
     Dosage: UNK
     Dates: start: 2016
  17. EFFEXOR [Concomitant]
     Active Substance: VENLAFAXINE HYDROCHLORIDE
     Dosage: 150 (UNITS UNKNOWN), 2X/DAY

REACTIONS (10)
  - Drug dependence [Unknown]
  - Drug ineffective [Unknown]
  - Malaise [Unknown]
  - Blood testosterone decreased [Unknown]
  - Affect lability [Unknown]
  - Anxiety [Unknown]
  - Feeling abnormal [Unknown]
  - Panic attack [Unknown]
  - COVID-19 [Recovered/Resolved]
  - Tachyphrenia [Recovered/Resolved]

NARRATIVE: CASE EVENT DATE: 20180101
